FAERS Safety Report 6179743-8 (Version None)
Quarter: 2009Q2

REPORT INFORMATION
  Report Type: 
  Country: None (occurrence: None)
  Receive Date: 20090505
  Receipt Date: 20090428
  Transmission Date: 20091009
  Serious: Yes (Hospitalization)
  Sender: FDA-Public Use
  Company Number: FR-SANOFI-SYNTHELABO-A02200901132

PATIENT
  Age: 57 Year
  Sex: Female

DRUGS (6)
  1. NEXIUM [Concomitant]
     Dosage: UNK
     Route: 065
  2. MOTILYO [Concomitant]
     Dosage: UNK
     Route: 048
  3. XANAX [Concomitant]
     Dosage: UNK
     Route: 048
  4. SOLUPRED [Concomitant]
     Route: 048
     Dates: start: 20090225, end: 20090301
  5. GEMZAR [Suspect]
     Indication: ADENOCARCINOMA
     Route: 041
     Dates: start: 20090225, end: 20090225
  6. ELOXATIN [Suspect]
     Indication: ADENOCARCINOMA
     Route: 041
     Dates: start: 20090226, end: 20090226

REACTIONS (2)
  - CYTOLYTIC HEPATITIS [None]
  - GASTROINTESTINAL DISORDER [None]
